FAERS Safety Report 16030776 (Version 2)
Quarter: 2019Q2

REPORT INFORMATION
  Report Type: Spontaneous
  Country: US (occurrence: US)
  Receive Date: 20190304
  Receipt Date: 20190417
  Transmission Date: 20190711
  Serious: Yes (Hospitalization, Other)
  Sender: FDA-Public Use
  Company Number: US-PFIZER INC-2019082425

PATIENT
  Age: 58 Year
  Sex: Male
  Weight: 69 kg

DRUGS (29)
  1. ZOLOFT [Suspect]
     Active Substance: SERTRALINE HYDROCHLORIDE
     Indication: SCHIZOPHRENIA
     Dosage: 100 MG, DAILY
     Route: 048
     Dates: start: 20190310, end: 20190312
  2. FOLVITE [FOLIC ACID] [Concomitant]
     Dosage: 1 MG, DAILY
     Route: 048
     Dates: end: 20190310
  3. FOLVITE [FOLIC ACID] [Concomitant]
     Dosage: 1 MG, DAILY
     Route: 048
     Dates: start: 20190309, end: 20190312
  4. ATIVAN [Concomitant]
     Active Substance: LORAZEPAM
     Dosage: 2 MG, AS NEEDED,(EVERY 6 HOURS AS NEEDED)
     Route: 048
     Dates: start: 20190307, end: 20190307
  5. ZYPREXA [Suspect]
     Active Substance: OLANZAPINE
     Indication: PSYCHOTIC DISORDER
     Dosage: 5 MG, 1X/DAY
     Route: 048
     Dates: end: 20190309
  6. ZYPREXA [Suspect]
     Active Substance: OLANZAPINE
     Dosage: 5 MG, 1X/DAY
     Route: 048
     Dates: start: 20190309, end: 20190312
  7. TYLENOL [Concomitant]
     Active Substance: ACETAMINOPHEN
     Dosage: 650 MG, AS NEEDED,(Q4HR-PRN)
     Route: 048
     Dates: end: 20190308
  8. TYLENOL [Concomitant]
     Active Substance: ACETAMINOPHEN
     Dosage: 1000 MG, AS NEEDED,(EVERY 6 HOURS AS NEEDED)
     Dates: start: 20190309, end: 20190312
  9. CATAPRES [Concomitant]
     Active Substance: CLONIDINE HYDROCHLORIDE
     Dosage: 0.1 MG, AS NEEDED,(Q6HR-PRN)
     Dates: start: 20190307, end: 20190312
  10. FOLVITE [FOLIC ACID] [Concomitant]
     Dosage: 1 MG, DAILY
     Route: 048
     Dates: start: 20190309
  11. ZOLOFT [Suspect]
     Active Substance: SERTRALINE HYDROCHLORIDE
     Indication: DYSPHONIA
     Dosage: 200 MG, 3X/DAY
     Route: 048
  12. CATAPRES [Concomitant]
     Active Substance: CLONIDINE HYDROCHLORIDE
     Dosage: 0.1 MG, AS NEEDED,(Q6HR-PRN)
     Dates: end: 20190311
  13. ZOLOFT [Suspect]
     Active Substance: SERTRALINE HYDROCHLORIDE
     Indication: DEPRESSION
     Dosage: 50 MG, DAILY
     Route: 048
     Dates: start: 20190308, end: 20190309
  14. NICODERM CQ [Concomitant]
     Active Substance: NICOTINE
     Dosage: 21 MG/24H, DAILY,(1 PATCH BY TRANSDERMAL ROUTE DAILY FOR 30 DAYS)
     Route: 062
     Dates: start: 20190308, end: 20190312
  15. MAALOX [ALUMINIUM HYDROXIDE;MAGNESIUM HYDROXIDE;SIMETICONE] [Concomitant]
     Dosage: 30 ML, AS NEEDED,(30 ML Q6HR-PRN)
     Route: 048
     Dates: start: 20190307, end: 20190312
  16. VITAMIN B-1 [Concomitant]
     Active Substance: THIAMINE HYDROCHLORIDE
     Dosage: 100 MG, DAILY
     Route: 048
     Dates: start: 20190309, end: 20190312
  17. DESYREL [Concomitant]
     Active Substance: TRAZODONE HYDROCHLORIDE
     Indication: INSOMNIA
     Dosage: 50 MG, AS NEEDED,(QHS-PRN)
     Route: 048
     Dates: end: 20190307
  18. ZYPREXA [Suspect]
     Active Substance: OLANZAPINE
     Dosage: 5 MG, 1X/DAY
     Route: 048
     Dates: end: 20190310
  19. ATIVAN [Concomitant]
     Active Substance: LORAZEPAM
     Indication: ALCOHOL DETOXIFICATION
     Dosage: 2 MG, AS NEEDED, (EVERY 4 HOURS AS NEEDED)
     Route: 048
     Dates: start: 20190307, end: 20190312
  20. TYLENOL [Concomitant]
     Active Substance: ACETAMINOPHEN
     Dosage: 650 MG, AS NEEDED,(EVERY 4 HOURS AS NEEDED)
     Dates: start: 20190307, end: 20190309
  21. ZYPREXA [Suspect]
     Active Substance: OLANZAPINE
     Indication: DYSPHONIA
     Dosage: 100 MG, 2X/DAY (ONE IN THE MORNING AND ONE AT NIGHT)
  22. MILK OF MAGNESIA [Concomitant]
     Active Substance: MAGNESIUM HYDROXIDE
     Dosage: 30 ML, AS NEEDED,(AT BEDTIME AS NEEDED)
     Route: 048
     Dates: start: 20190307, end: 20190312
  23. ZOLOFT [Suspect]
     Active Substance: SERTRALINE HYDROCHLORIDE
     Dosage: 10 MG, 2X/DAY
  24. TYLENOL [Concomitant]
     Active Substance: ACETAMINOPHEN
     Dosage: 1000 MG, AS NEEDED,(Q6HR-PRN)
     Dates: end: 20190309
  25. CATAPRES [Concomitant]
     Active Substance: CLONIDINE HYDROCHLORIDE
     Dosage: 0.1 MG, AS NEEDED,(Q6HR-PRN)
     Route: 048
     Dates: end: 20190307
  26. CATAPRES [Concomitant]
     Active Substance: CLONIDINE HYDROCHLORIDE
     Dosage: 0.1 MG, AS NEEDED,(Q6HR-PRN)
     Dates: end: 20190309
  27. IMODIUM [Concomitant]
     Active Substance: LOPERAMIDE HYDROCHLORIDE
     Dosage: 2 MG, AS NEEDED,(EVERY 4 HOURS AS NEEDED)
     Route: 048
     Dates: start: 20190307, end: 20190312
  28. MILK OF MAGNESIA [Concomitant]
     Active Substance: MAGNESIUM HYDROXIDE
     Dosage: 30 ML, AS NEEDED,(MILK OF MAGNESIA 400MG/5ML)
     Route: 048
     Dates: end: 20190308
  29. ZOFRAN [Concomitant]
     Active Substance: ONDANSETRON HYDROCHLORIDE
     Dosage: 4 MG, AS NEEDED,(Q8HR-PRN)
     Route: 048
     Dates: start: 20190307, end: 20190312

REACTIONS (14)
  - Dysgraphia [Not Recovered/Not Resolved]
  - Hypoaesthesia [Not Recovered/Not Resolved]
  - Fall [Not Recovered/Not Resolved]
  - Haemoglobin decreased [Unknown]
  - Hallucination, auditory [Not Recovered/Not Resolved]
  - Hypoaesthesia oral [Not Recovered/Not Resolved]
  - Tremor [Not Recovered/Not Resolved]
  - Blood triglycerides increased [Unknown]
  - Nervousness [Not Recovered/Not Resolved]
  - Prescribed overdose [Unknown]
  - Suicidal ideation [Not Recovered/Not Resolved]
  - Red blood cell count decreased [Unknown]
  - Haematocrit decreased [Unknown]
  - Insomnia [Not Recovered/Not Resolved]

NARRATIVE: CASE EVENT DATE: 2015
